FAERS Safety Report 8134850-5 (Version None)
Quarter: 2012Q1

REPORT INFORMATION
  Report Type: 
  Country: None (occurrence: None)
  Receive Date: 20120214
  Receipt Date: 20120203
  Transmission Date: 20120608
  Serious: Yes (Other)
  Sender: FDA-Public Use
  Company Number: FR-VERTEX PHARMACEUTICALS INC.-AE-2011-000949

PATIENT
  Sex: Male
  Weight: 61 kg

DRUGS (6)
  1. VX-950 [Suspect]
     Indication: HEPATITIS C
     Route: 048
     Dates: start: 20110712, end: 20110901
  2. COPEGUS [Concomitant]
     Indication: HEPATITIS C
     Route: 048
     Dates: start: 20110712, end: 20110901
  3. VX-950 [Suspect]
     Indication: HEPATIC CIRRHOSIS
  4. PEGASYS [Concomitant]
     Indication: HEPATITIS C
     Route: 058
     Dates: start: 20110712, end: 20110901
  5. PEGASYS [Concomitant]
     Indication: HEPATIC CIRRHOSIS
  6. COPEGUS [Concomitant]
     Indication: HEPATIC CIRRHOSIS

REACTIONS (4)
  - XEROSIS [None]
  - TOXIC SKIN ERUPTION [None]
  - SKIN EXFOLIATION [None]
  - ERYTHEMA [None]
